FAERS Safety Report 6916704-2 (Version None)
Quarter: 2010Q3

REPORT INFORMATION
  Report Type: 
  Country: None (occurrence: None)
  Receive Date: 20100810
  Receipt Date: 20100728
  Transmission Date: 20110219
  Serious: Yes (Other)
  Sender: FDA-Public Use
  Company Number: US-ROCHE-717941

PATIENT

DRUGS (25)
  1. SAQUINAVIR [Suspect]
     Indication: PRODUCT USED FOR UNKNOWN INDICATION
     Route: 064
     Dates: start: 20031025, end: 20031118
  2. SAQUINAVIR [Suspect]
     Route: 064
     Dates: start: 20031119
  3. RITONAVIR [Suspect]
     Indication: PRODUCT USED FOR UNKNOWN INDICATION
     Route: 064
     Dates: start: 20031119
  4. RITONAVIR [Suspect]
     Route: 064
     Dates: start: 20031025, end: 20031118
  5. LAMIVUDINE + ZIDOVUDINE [Suspect]
     Indication: PRODUCT USED FOR UNKNOWN INDICATION
     Route: 064
     Dates: start: 20031025
  6. PYRAZINAMIDE [Concomitant]
  7. PYRIDOXINE HYDROCHLORIDE [Concomitant]
  8. RANITIDINE HYDROCHLORIDE [Concomitant]
  9. RIFAMPICIN [Concomitant]
  10. ALBUTEROL [Concomitant]
  11. AZITHROMYCIN [Concomitant]
  12. BACTRIM [Concomitant]
  13. BROMOPRIDE [Concomitant]
  14. CEFALOTIN SODIUM [Concomitant]
  15. CEFOTAXIME SODIUM [Concomitant]
  16. DEXAMETHASONE [Concomitant]
  17. DIMENHYDRINATE [Concomitant]
  18. FLUCONAZOLE [Concomitant]
  19. FOLINIC ACID [Concomitant]
  20. ISONIAZID [Concomitant]
  21. METRONIDAZOLE [Concomitant]
  22. MICONAZOLE [Concomitant]
  23. MISOPROSTOL [Concomitant]
  24. NYSTATIN [Concomitant]
  25. OXYTOCIN [Concomitant]

REACTIONS (1)
  - STILLBIRTH [None]
